FAERS Safety Report 6831293-9 (Version None)
Quarter: 2010Q3

REPORT INFORMATION
  Report Type: 
  Country: None (occurrence: None)
  Receive Date: 20100712
  Receipt Date: 20100705
  Transmission Date: 20110219
  Serious: Yes (Death, Hospitalization, Other)
  Sender: FDA-Public Use
  Company Number: GB-SANOFI-AVENTIS-2010SA026706

PATIENT
  Age: 64 Year
  Sex: Male
  Weight: 76 kg

DRUGS (4)
  1. OXALIPLATIN [Suspect]
     Dosage: DOSE:200 UNIT(S)
     Route: 041
     Dates: start: 20100126, end: 20100126
  2. OXALIPLATIN [Suspect]
     Route: 041
     Dates: start: 20100205, end: 20100205
  3. XELODA [Suspect]
     Dosage: DOSE:1500 UNIT(S)
     Route: 048
     Dates: start: 20100126, end: 20100130
  4. XELODA [Suspect]
     Route: 048
     Dates: start: 20100205, end: 20100205

REACTIONS (9)
  - DIARRHOEA [None]
  - DIHYDROPYRIMIDINE DEHYDROGENASE DEFICIENCY [None]
  - INFECTION [None]
  - MUCOSAL INFLAMMATION [None]
  - NEUTROPENIA [None]
  - PERINEAL ULCERATION [None]
  - PHARYNGEAL ULCERATION [None]
  - PYREXIA [None]
  - THROMBOCYTOPENIA [None]
